FAERS Safety Report 11699179 (Version 2)
Quarter: 2015Q4

REPORT INFORMATION
  Report Type: Spontaneous
  Country: IN (occurrence: IN)
  Receive Date: 20151104
  Receipt Date: 20151104
  Transmission Date: 20160304
  Serious: Yes (Hospitalization)
  Sender: FDA-Public Use
  Company Number: IN-ANTARES PHARMA, INC.-2015-LIT-ME-0108

PATIENT
  Age: 57 Year
  Sex: Male

DRUGS (1)
  1. METHOTREXATE [Suspect]
     Active Substance: METHOTREXATE
     Indication: PSORIASIS
     Dosage: 5 MG, QWK
     Route: 048

REACTIONS (6)
  - Toxicity to various agents [Recovered/Resolved]
  - White blood cell count decreased [Recovered/Resolved]
  - Skin lesion [Recovered/Resolved]
  - Odynophagia [Recovered/Resolved]
  - Oral disorder [Recovered/Resolved]
  - Thrombocytosis [None]
